FAERS Safety Report 4305088-4 (Version None)
Quarter: 2004Q1

REPORT INFORMATION
  Report Type: 
  Country: None (occurrence: None)
  Receive Date: 20040224
  Receipt Date: 20040224
  Transmission Date: 20041129
  Serious: Yes (Other)
  Sender: FDA-Public Use
  Company Number: None

PATIENT
  Sex: Female
  Weight: 54.4316 kg

DRUGS (1)
  1. KEFTAB [Suspect]
     Indication: STAPHYLOCOCCAL INFECTION
     Dosage: 1 TAB 2X/DAY

REACTIONS (12)
  - CHILLS [None]
  - DRY MOUTH [None]
  - EYE REDNESS [None]
  - INSOMNIA [None]
  - LOCALISED EXFOLIATION [None]
  - MARKEDLY REDUCED DIETARY INTAKE [None]
  - NAIL DISORDER [None]
  - PHOTOPHOBIA [None]
  - PYREXIA [None]
  - RASH ERYTHEMATOUS [None]
  - RESTLESS LEGS SYNDROME [None]
  - SWELLING FACE [None]
